FAERS Safety Report 6034428-3 (Version None)
Quarter: 2009Q1

REPORT INFORMATION
  Report Type: 
  Country: None (occurrence: None)
  Receive Date: 20090112
  Receipt Date: 20090109
  Transmission Date: 20090719
  Serious: Yes (Hospitalization)
  Sender: FDA-Public Use
  Company Number: B0551040A

PATIENT
  Age: 13 Year
  Sex: Female
  Weight: 41 kg

DRUGS (3)
  1. RELENZA [Suspect]
     Indication: INFLUENZA
     Dosage: 10MG TWICE PER DAY
     Route: 055
     Dates: start: 20081215, end: 20081216
  2. LOBU [Suspect]
     Indication: INFLUENZA
     Dosage: 60MG PER DAY
     Route: 048
     Dates: start: 20081215, end: 20081216
  3. UNKNOWN DRUG [Concomitant]
     Indication: INFLUENZA
     Dosage: 1500MG PER DAY
     Route: 048
     Dates: start: 20081215, end: 20081216

REACTIONS (7)
  - ABNORMAL BEHAVIOUR [None]
  - AMNESIA [None]
  - DELIRIUM [None]
  - DIARRHOEA [None]
  - DISORIENTATION [None]
  - LOSS OF CONSCIOUSNESS [None]
  - VOMITING [None]
